FAERS Safety Report 10676001 (Version 3)
Quarter: 2015Q2

REPORT INFORMATION
  Report Type: Report from Study
  Country: PR (occurrence: PR)
  Receive Date: 20141225
  Receipt Date: 20150626
  Transmission Date: 20150821
  Serious: Yes (Hospitalization, Other)
  Sender: FDA-Public Use
  Company Number: PR-ABBVIE-14K-131-1323307-00

PATIENT
  Age: 47 Year
  Sex: Male
  Weight: 50.85 kg

DRUGS (3)
  1. IMODIUM [Concomitant]
     Active Substance: LOPERAMIDE HYDROCHLORIDE
     Indication: DIARRHOEA
     Route: 048
  2. HUMIRA [Suspect]
     Active Substance: ADALIMUMAB
     Indication: CROHN^S DISEASE
     Route: 058
     Dates: start: 2013, end: 20141101
  3. AMIODARONE [Concomitant]
     Active Substance: AMIODARONE
     Indication: WOLFF-PARKINSON-WHITE SYNDROME
     Dosage: HALF TABLET DAILY
     Route: 048

REACTIONS (3)
  - Post procedural complication [Recovered/Resolved]
  - Respiratory arrest [Recovered/Resolved]
  - Colostomy [Recovered/Resolved]

NARRATIVE: CASE EVENT DATE: 201412
